FAERS Safety Report 5190001-0 (Version None)
Quarter: 2006Q4

REPORT INFORMATION
  Report Type: 
  Country: None (occurrence: None)
  Receive Date: 20061221
  Receipt Date: 20061212
  Transmission Date: 20070319
  Serious: Yes (Other)
  Sender: FDA-Public Use
  Company Number: US-ELI_LILLY_AND_COMPANY-US200612002024

PATIENT
  Age: 80 Year
  Sex: Female

DRUGS (1)
  1. EVISTA [Suspect]
     Indication: BONE DENSITY DECREASED
     Dosage: UNK, UNKNOWN
     Route: 048
     Dates: end: 20061101

REACTIONS (8)
  - ASTIGMATISM [None]
  - BLINDNESS TRANSIENT [None]
  - BLINDNESS UNILATERAL [None]
  - DRY EYE [None]
  - EXTRAOCULAR MUSCLE PARESIS [None]
  - HYPERHIDROSIS [None]
  - LACRIMATION INCREASED [None]
  - VISUAL ACUITY REDUCED [None]
